FAERS Safety Report 15331931 (Version 1)
Quarter: 2018Q3

REPORT INFORMATION
  Report Type: Spontaneous
  Country: SE (occurrence: SE)
  Receive Date: 20180829
  Receipt Date: 20180829
  Transmission Date: 20181010
  Serious: Yes (Other)
  Sender: FDA-Public Use
  Company Number: SE-ELI_LILLY_AND_COMPANY-SE201808011332

PATIENT
  Age: 29 Year
  Sex: Male

DRUGS (9)
  1. VOXRA [Suspect]
     Active Substance: BUPROPION HYDROCHLORIDE
     Indication: POST-TRAUMATIC STRESS DISORDER
     Dosage: UNK
     Dates: start: 20150208, end: 20160516
  2. FLUOXETINE HYDROCHLORIDE. [Suspect]
     Active Substance: FLUOXETINE HYDROCHLORIDE
     Indication: GENERALISED ANXIETY DISORDER
  3. VOXRA [Suspect]
     Active Substance: BUPROPION HYDROCHLORIDE
     Indication: GENERALISED ANXIETY DISORDER
  4. SERTRALINE [Suspect]
     Active Substance: SERTRALINE HYDROCHLORIDE
     Indication: POST-TRAUMATIC STRESS DISORDER
     Dosage: UNK
  5. SERTRALINE [Suspect]
     Active Substance: SERTRALINE HYDROCHLORIDE
     Indication: GENERALISED ANXIETY DISORDER
  6. FLUOXETINE HYDROCHLORIDE. [Suspect]
     Active Substance: FLUOXETINE HYDROCHLORIDE
     Indication: PANIC ATTACK
  7. FLUOXETINE HYDROCHLORIDE. [Suspect]
     Active Substance: FLUOXETINE HYDROCHLORIDE
     Indication: POST-TRAUMATIC STRESS DISORDER
     Dosage: UNK UNK, UNKNOWN
     Route: 065
     Dates: start: 20150208, end: 20160516
  8. VOXRA [Suspect]
     Active Substance: BUPROPION HYDROCHLORIDE
     Indication: PANIC ATTACK
     Dosage: UNK UNK, UNKNOWN
     Route: 065
     Dates: start: 20150208, end: 20160516
  9. SERTRALINE [Suspect]
     Active Substance: SERTRALINE HYDROCHLORIDE
     Indication: PANIC ATTACK
     Dosage: UNK UNK, UNKNOWN
     Route: 065
     Dates: start: 20150208, end: 20160516

REACTIONS (2)
  - Sexual dysfunction [Not Recovered/Not Resolved]
  - Orgasmic sensation decreased [Not Recovered/Not Resolved]

NARRATIVE: CASE EVENT DATE: 20150208
